FAERS Safety Report 14471373 (Version 1)
Quarter: 2018Q1

REPORT INFORMATION
  Report Type: Spontaneous
  Country: US (occurrence: US)
  Receive Date: 20180130
  Receipt Date: 20180130
  Transmission Date: 20180509
  Serious: Yes (Disabling)
  Sender: FDA-Public Use
  Company Number: None

PATIENT
  Age: 65 Year
  Sex: Female
  Weight: 55.35 kg

DRUGS (2)
  1. GADAVIST [Suspect]
     Active Substance: GADOBUTROL
     Dates: start: 20170407
  2. MAGNEVIST [Suspect]
     Active Substance: GADOPENTETATE DIMEGLUMINE
     Dates: start: 20140407

REACTIONS (18)
  - Paraesthesia [None]
  - Vision blurred [None]
  - Tinnitus [None]
  - Muscle twitching [None]
  - Lacrimation increased [None]
  - Arthralgia [None]
  - Peripheral swelling [None]
  - Spinal pain [None]
  - Joint lock [None]
  - Erythema [None]
  - Alopecia [None]
  - Hyporeflexia [None]
  - Weight decreased [None]
  - Contrast media allergy [None]
  - Musculoskeletal disorder [None]
  - Gait disturbance [None]
  - Muscle tightness [None]
  - Burning sensation [None]

NARRATIVE: CASE EVENT DATE: 20170407
